FAERS Safety Report 5067642-4 (Version None)
Quarter: 2006Q3

REPORT INFORMATION
  Report Type: 
  Country: None (occurrence: None)
  Receive Date: 20060727
  Receipt Date: 20060719
  Transmission Date: 20061208
  Serious: No
  Sender: FDA-Public Use
  Company Number: 34350

PATIENT
  Age: 73 Year
  Sex: Female

DRUGS (1)
  1. TRAVATAN [Suspect]
     Dosage: OPHT
     Route: 047

REACTIONS (1)
  - ANAPHYLACTIC SHOCK [None]
